FAERS Safety Report 10013753 (Version 5)
Quarter: 2016Q3

REPORT INFORMATION
  Report Type: Spontaneous
  Country: US (occurrence: US)
  Receive Date: 20140316
  Receipt Date: 20160727
  Transmission Date: 20161108
  Serious: Yes (Hospitalization, Other)
  Sender: FDA-Public Use
  Company Number: US-BAYER-2014-039449

PATIENT
  Age: 23 Year
  Sex: Female
  Weight: 88.44 kg

DRUGS (1)
  1. MIRENA [Suspect]
     Active Substance: LEVONORGESTREL
     Indication: CONTRACEPTION
     Dosage: 20 MCG/24HR, CONT
     Route: 015
     Dates: start: 20091112, end: 20110603

REACTIONS (11)
  - Depression [None]
  - Anxiety [None]
  - Device issue [None]
  - Uterine perforation [None]
  - Emotional distress [None]
  - Pelvic pain [None]
  - Nervousness [None]
  - Infection [None]
  - Pain [None]
  - Pelvic inflammatory disease [None]
  - Injury [None]

NARRATIVE: CASE EVENT DATE: 201102
